FAERS Safety Report 19721093 (Version 1)
Quarter: 2021Q3

REPORT INFORMATION
  Report Type: Spontaneous
  Country: DE (occurrence: DE)
  Receive Date: 20210818
  Receipt Date: 20210818
  Transmission Date: 20211014
  Serious: Yes (Hospitalization, Other)
  Sender: FDA-Public Use
  Company Number: NVSC2021DE180950

PATIENT
  Age: 32 Year
  Sex: Male
  Weight: 52 kg

DRUGS (1)
  1. PHENOXYMETHYLPENICILLIN (= PENICILLIN V) [Suspect]
     Active Substance: PENICILLIN V
     Indication: PRODUCT USED FOR UNKNOWN INDICATION
     Dosage: UNK (SCHEMA)
     Route: 065

REACTIONS (12)
  - Rash [Unknown]
  - Urticaria [Unknown]
  - Confusional state [Unknown]
  - General physical health deterioration [Unknown]
  - Anxiety [Unknown]
  - Memory impairment [Unknown]
  - Pyrexia [Unknown]
  - Oropharyngeal pain [Unknown]
  - Depressed level of consciousness [Unknown]
  - Tachycardia [Unknown]
  - Restlessness [Unknown]
  - Agitation [Unknown]
